FAERS Safety Report 6881453-6 (Version None)
Quarter: 2010Q3

REPORT INFORMATION
  Report Type: 
  Country: None (occurrence: None)
  Receive Date: 20100728
  Receipt Date: 20100728
  Transmission Date: 20110219
  Serious: Yes (Hospitalization, Other)
  Sender: FDA-Public Use
  Company Number: None

PATIENT

DRUGS (2)
  1. CREST PRO-HEALTH ORAL RINSE DIST. BY PROCTOR AND GAMBLE [Suspect]
  2. CREST PRO-HEALTH ORAL RINSE DIST. BY PROCTOR AND GAMBLE [Suspect]

REACTIONS (2)
  - PRODUCT PACKAGING ISSUE [None]
  - PRODUCT QUALITY ISSUE [None]
